FAERS Safety Report 8932717 (Version 1)
Quarter: 2012Q4

REPORT INFORMATION
  Report Type: Spontaneous
  Country: US (occurrence: None)
  Receive Date: 20121126
  Receipt Date: 20121126
  Transmission Date: 20130627
  Serious: Yes (Hospitalization)
  Sender: FDA-Public Use
  Company Number: None

PATIENT
  Age: 100 Year
  Sex: Female
  Weight: 90 kg

DRUGS (13)
  1. GABAPENTIN [Suspect]
     Indication: PERIPHERAL NEUROPATHY
     Route: 048
     Dates: start: 20110112
  2. GABAPENTIN [Suspect]
     Indication: PERIPHERAL NEUROPATHY
     Route: 048
     Dates: start: 20120112
  3. ALBUTEROL [Concomitant]
  4. ASPIRIN [Concomitant]
  5. CALCIUM/VITAMIN D [Concomitant]
  6. CITALOPRAM [Concomitant]
  7. HEPARIN [Concomitant]
  8. HYDROCODONE/APAP [Concomitant]
  9. LEVOFLOXACIN [Concomitant]
  10. LEVOTHYROXINE [Concomitant]
  11. MEMANTINE [Concomitant]
  12. SENNA/DOCUSATE SODIUM [Concomitant]
  13. TOBRAMYCIN SULFATE [Concomitant]

REACTIONS (2)
  - Somnolence [None]
  - Depressed level of consciousness [None]
